FAERS Safety Report 8516851-8 (Version None)
Quarter: 2012Q3

REPORT INFORMATION
  Report Type: 
  Country: None (occurrence: None)
  Receive Date: 20120718
  Receipt Date: 20120710
  Transmission Date: 20120928
  Serious: Yes (Death, Life-Threatening, Hospitalization)
  Sender: FDA-Public Use
  Company Number: GB-MILLENNIUM PHARMACEUTICALS, INC.-2010-05904

PATIENT

DRUGS (20)
  1. CYCLOPHOSPHAMIDE [Suspect]
     Dosage: 1300 MG, UNK
     Dates: start: 20101105
  2. VELCADE [Suspect]
     Indication: MANTLE CELL LYMPHOMA
     Dosage: 2.8 MG, UNK
     Route: 042
     Dates: start: 20100824
  3. PREDNISONE [Suspect]
     Indication: MANTLE CELL LYMPHOMA
     Dosage: 100 MG, UNK
     Route: 048
     Dates: start: 20100824, end: 20101105
  4. METOCLOPRAMIDE [Concomitant]
     Dosage: 10 MG, UNK
  5. SIMVASTATIN [Concomitant]
     Indication: HYPERLIPIDAEMIA
     Dosage: 40 MG, QD
     Route: 048
     Dates: start: 20090901
  6. RAMIPRIL [Concomitant]
     Indication: ANGINA PECTORIS
     Dosage: 1.25 MG, QD
     Route: 048
     Dates: start: 20090901
  7. ACYCLOVIR [Concomitant]
     Dosage: 400 MG, UNK
  8. PIPERACILLIN AND TAZOBACTAM [Concomitant]
     Dosage: 4.5 MG, UNK
  9. FLUOXETINE HCL [Concomitant]
     Dosage: 20 MG, QD
  10. PREDNISONE [Suspect]
     Dosage: 100 MG, UNK
     Route: 048
     Dates: start: 20101105
  11. E45 [Concomitant]
     Indication: DRY SKIN
     Dosage: UNK
     Route: 061
     Dates: start: 20090722
  12. ASPIRIN [Concomitant]
     Indication: CORONARY ARTERY DISEASE
     Dosage: 75 MG, QD
     Route: 048
     Dates: start: 20090901
  13. GAVISCON [Concomitant]
     Indication: DYSPEPSIA
     Dosage: 10 ML, PRN
     Dates: start: 20100831
  14. VELCADE [Suspect]
     Dosage: 1.3 UNK, UNK
     Route: 042
     Dates: start: 20101105, end: 20101112
  15. DOXORUBICIN HCL [Suspect]
     Indication: MANTLE CELL LYMPHOMA
     Dosage: 90 MG, UNK
     Route: 042
     Dates: start: 20100824
  16. DOXORUBICIN HCL [Suspect]
     Dosage: 83 UNK, UNK
     Route: 042
     Dates: start: 20101105
  17. CYCLOPHOSPHAMIDE [Suspect]
     Indication: MANTLE CELL LYMPHOMA
     Dosage: 1300 MG, UNK
     Route: 042
     Dates: start: 20100824, end: 20101105
  18. VINCRISTINE [Suspect]
     Indication: MANTLE CELL LYMPHOMA
     Dosage: 2 MG, UNK
     Route: 042
     Dates: start: 20100824
  19. BISOPROLOL FUMARATE [Concomitant]
     Indication: CORONARY ARTERY DISEASE
     Dosage: 1.25 MG, QD
     Dates: start: 20090901
  20. OMEPRAZOLE [Concomitant]
     Dosage: 20 MG, QD
     Dates: start: 20100831

REACTIONS (2)
  - RESPIRATORY ARREST [None]
  - NEUTROPENIC SEPSIS [None]
